FAERS Safety Report 9365369 (Version 2)
Quarter: 2013Q3

REPORT INFORMATION
  Report Type: Spontaneous
  Country: JP (occurrence: JP)
  Receive Date: 20130625
  Receipt Date: 20130701
  Transmission Date: 20140515
  Serious: Yes (Other)
  Sender: FDA-Public Use
  Company Number: JP-SP-2013-07206

PATIENT
  Age: 76 Year
  Sex: Male

DRUGS (1)
  1. IMMUCYST [Suspect]
     Indication: OFF LABEL USE
     Dosage: 40.5 MG WITH 40 ML OF SALINE
     Route: 043

REACTIONS (2)
  - Pyelonephritis acute [Unknown]
  - Renal failure acute [Unknown]
